FAERS Safety Report 20562277 (Version 1)
Quarter: 2022Q1

REPORT INFORMATION
  Report Type: Spontaneous
  Country: JP (occurrence: JP)
  Receive Date: 20220307
  Receipt Date: 20220307
  Transmission Date: 20220423
  Serious: Yes (Hospitalization)
  Sender: FDA-Public Use
  Company Number: JP-CELGENE-JPN-20220301037

PATIENT

DRUGS (3)
  1. AZACITIDINE [Suspect]
     Active Substance: AZACITIDINE
     Indication: Myelodysplastic syndrome
     Dosage: 100 MILLIGRAM
     Route: 065
     Dates: start: 20210909
  2. AZACITIDINE [Suspect]
     Active Substance: AZACITIDINE
     Dosage: 100 MILLIGRAM
     Route: 065
     Dates: start: 20220224
  3. VENETOCLAX [Concomitant]
     Active Substance: VENETOCLAX
     Indication: Product used for unknown indication
     Route: 065
     Dates: start: 20220224

REACTIONS (1)
  - Infection [Recovered/Resolved]

NARRATIVE: CASE EVENT DATE: 20220202
